FAERS Safety Report 16374802 (Version 2)
Quarter: 2020Q2

REPORT INFORMATION
  Report Type: Report from Study
  Country: US (occurrence: US)
  Receive Date: 20190530
  Receipt Date: 20200519
  Transmission Date: 20200713
  Serious: Yes (Hospitalization)
  Sender: FDA-Public Use
  Company Number: US-ASTRAZENECA-2019SE77877

PATIENT
  Sex: Male
  Weight: 83.9 kg

DRUGS (21)
  1. LISINOPRIL. [Suspect]
     Active Substance: LISINOPRIL
     Route: 048
  2. FOLIC ACID. [Concomitant]
     Active Substance: FOLIC ACID
  3. VITAMIN B12 [Concomitant]
     Active Substance: CYANOCOBALAMIN
  4. CALCIUM [Concomitant]
     Active Substance: CALCIUM
  5. DIGOX [Concomitant]
     Active Substance: DIGOXIN
  6. TAGRISSO [Suspect]
     Active Substance: OSIMERTINIB
     Indication: NON-SMALL CELL LUNG CANCER
     Route: 048
     Dates: end: 201905
  7. METOPROLOL SUCCINATE. [Suspect]
     Active Substance: METOPROLOL SUCCINATE
     Route: 048
  8. ELIQUIS [Concomitant]
     Active Substance: APIXABAN
  9. VITAMIN D3 [Concomitant]
     Active Substance: CHOLECALCIFEROL
  10. ALEVE [Concomitant]
     Active Substance: NAPROXEN SODIUM
  11. PANTOPRAZOLE [Concomitant]
     Active Substance: PANTOPRAZOLE
  12. FERROUS SULFATE. [Concomitant]
     Active Substance: FERROUS SULFATE
  13. ASPIRIN EC [Concomitant]
     Active Substance: ASPIRIN
  14. MULTIVITAMINS [Concomitant]
     Active Substance: VITAMINS
  15. VITAMIN C [Concomitant]
     Active Substance: ASCORBIC ACID
  16. ATORVASTATIN [Concomitant]
     Active Substance: ATORVASTATIN
  17. TAGRISSO [Suspect]
     Active Substance: OSIMERTINIB
     Indication: NON-SMALL CELL LUNG CANCER
     Route: 048
     Dates: start: 20200505
  18. ACIDOPHILUS [Concomitant]
     Active Substance: LACTOBACILLUS ACIDOPHILUS
  19. FISH OIL [Concomitant]
     Active Substance: FISH OIL
  20. FUROSEMIDE. [Concomitant]
     Active Substance: FUROSEMIDE
  21. METHOTREXATE. [Concomitant]
     Active Substance: METHOTREXATE

REACTIONS (5)
  - Cardiac disorder [Unknown]
  - Coma [Recovered/Resolved]
  - Cardiac valve disease [Unknown]
  - Cardiac fibrillation [Unknown]
  - Pneumonia [Unknown]
